FAERS Safety Report 13594745 (Version 1)
Quarter: 2017Q2

REPORT INFORMATION
  Report Type: Other
  Country: GB (occurrence: CA)
  Receive Date: 20170530
  Receipt Date: 20170530
  Transmission Date: 20170830
  Serious: Yes (Life-Threatening, Hospitalization, Other)
  Sender: FDA-Public Use
  Company Number: CA-INTERNATIONAL MEDICATION SYSTEMS, LIMITED-2021399

PATIENT
  Age: 3 Year
  Sex: Male
  Weight: 15 kg

DRUGS (3)
  1. MORPHINE, 0.2 MG/KG PER DOSE [Suspect]
     Active Substance: MORPHINE
     Indication: ANALGESIC THERAPY
     Route: 048
  2. PARACETAMOL, 15 MG/KG PER DOSE [Concomitant]
     Route: 048
  3. MORPHINE, 1 MG/KG PER DOSE [Suspect]
     Active Substance: MORPHINE
     Route: 048

REACTIONS (16)
  - Somnolence [Recovered/Resolved]
  - Generalised tonic-clonic seizure [Recovered/Resolved]
  - Oxygen saturation decreased [None]
  - Apnoea [Recovered/Resolved]
  - Cyanosis [None]
  - Pneumonia [None]
  - Product dosage form confusion [None]
  - Tremor [Recovered/Resolved]
  - Tachycardia [Recovered/Resolved]
  - Pain [None]
  - Drug dispensing error [Recovered/Resolved]
  - Toxicity to various agents [Recovered/Resolved]
  - Miosis [Recovered/Resolved]
  - Pyrexia [None]
  - Drug dispensing error [None]
  - Polyuria [None]
